FAERS Safety Report 11936179 (Version 1)
Quarter: 2016Q1

REPORT INFORMATION
  Report Type: Report from Study
  Country: US (occurrence: US)
  Receive Date: 20160121
  Receipt Date: 20160121
  Transmission Date: 20160526
  Serious: No
  Sender: FDA-Public Use
  Company Number: US-AMGEN-USASL2016001159

PATIENT
  Age: 63 Year

DRUGS (1)
  1. KYPROLIS [Suspect]
     Active Substance: CARFILZOMIB
     Indication: PRODUCT USED FOR UNKNOWN INDICATION
     Dosage: UNK
     Route: 065
     Dates: start: 20151207

REACTIONS (5)
  - Platelet count abnormal [Unknown]
  - Hypertension [Recovering/Resolving]
  - Throat irritation [Unknown]
  - Neutrophil count abnormal [Unknown]
  - Dyspnoea paroxysmal nocturnal [Unknown]
